FAERS Safety Report 18212124 (Version 2)
Quarter: 2020Q4

REPORT INFORMATION
  Report Type: Spontaneous
  Country: CN (occurrence: CN)
  Receive Date: 20200831
  Receipt Date: 20201001
  Transmission Date: 20210113
  Serious: Yes (Hospitalization, Other)
  Sender: FDA-Public Use
  Company Number: CN-ASTELLAS-2020US029112

PATIENT
  Age: 46 Year
  Sex: Male

DRUGS (13)
  1. TEICOPLANIN [Concomitant]
     Active Substance: TEICOPLANIN
     Indication: INFECTION PROPHYLAXIS
     Dosage: UNK UNK, UNKNOWN FREQ.
     Route: 042
     Dates: start: 20190301
  2. GANCICLOVIR. [Concomitant]
     Active Substance: GANCICLOVIR
     Indication: INFECTION PROPHYLAXIS
     Dosage: UNK UNK, UNKNOWN FREQ.
     Route: 042
     Dates: start: 20190301
  3. METHYLPREDNISOLONE SODIUM SUCCINATE. [Concomitant]
     Active Substance: METHYLPREDNISOLONE SODIUM SUCCINATE
     Indication: PROPHYLAXIS AGAINST TRANSPLANT REJECTION
     Route: 065
     Dates: start: 20190301, end: 20190301
  4. REDUCED GLUTATHIONE SODIUM [Concomitant]
     Active Substance: GLUTATHIONE
     Indication: PROPHYLAXIS
     Dosage: UNK UNK, UNKNOWN FREQ.
     Route: 065
     Dates: start: 20190301
  5. PROGRAF [Suspect]
     Active Substance: TACROLIMUS
     Indication: PROPHYLAXIS AGAINST TRANSPLANT REJECTION
     Dosage: 0.5 MG, EVERY 12 HOURS
     Route: 048
     Dates: start: 20190301, end: 201903
  6. ADENOSYLMETHIONINE [Concomitant]
     Indication: PROPHYLAXIS
     Dosage: UNK UNK, UNKNOWN FREQ.
     Route: 065
     Dates: start: 20190301
  7. PROGRAF [Suspect]
     Active Substance: TACROLIMUS
     Route: 048
     Dates: start: 201903
  8. METHYLPREDNISOLONE SODIUM SUCCINATE. [Concomitant]
     Active Substance: METHYLPREDNISOLONE SODIUM SUCCINATE
     Dosage: UNK UNK, UNKNOWN FREQ. (REDUCED DOSE)
     Route: 065
     Dates: start: 20190302
  9. MEROPENEM. [Concomitant]
     Active Substance: MEROPENEM
     Indication: INFECTION PROPHYLAXIS
     Dosage: UNK UNK, UNKNOWN FREQ.
     Route: 042
     Dates: start: 20190301
  10. POLYENE PHOSPHATIDYLCHOLINE [Concomitant]
     Active Substance: PHOSPHOLIPID
     Indication: PROPHYLAXIS
     Dosage: UNK UNK, UNKNOWN FREQ.
     Route: 065
     Dates: start: 20190301
  11. LANSOPRAZOLE. [Concomitant]
     Active Substance: LANSOPRAZOLE
     Indication: PROPHYLAXIS AGAINST GASTROINTESTINAL ULCER
     Dosage: UNK UNK, UNKNOWN FREQ.
     Route: 065
     Dates: start: 20190301
  12. MYCAMINE [Suspect]
     Active Substance: MICAFUNGIN SODIUM
     Indication: INFECTION PROPHYLAXIS
     Dosage: 100MG+NS 50ML, ONCE DAILY (CONTINUOUS MICRO PUMPING-PUMP SPEED 20ML/H)
     Route: 042
     Dates: start: 20190301, end: 20190305
  13. ENTECAVIR. [Concomitant]
     Active Substance: ENTECAVIR
     Indication: ANTIVIRAL PROPHYLAXIS
     Dosage: UNK UNK, UNKNOWN FREQ.
     Route: 065
     Dates: start: 20190301

REACTIONS (3)
  - Product use in unapproved indication [Unknown]
  - Sinus bradycardia [Recovered/Resolved]
  - Immunosuppressant drug level decreased [Recovered/Resolved]

NARRATIVE: CASE EVENT DATE: 201903
